FAERS Safety Report 5380321-9 (Version None)
Quarter: 2007Q3

REPORT INFORMATION
  Report Type: 
  Country: None (occurrence: None)
  Receive Date: 20070706
  Receipt Date: 20070517
  Transmission Date: 20080115
  Serious: No
  Sender: FDA-Public Use
  Company Number: A0651781A

PATIENT
  Age: 48 Year
  Sex: Female

DRUGS (6)
  1. TYKERB [Suspect]
     Indication: BREAST CANCER
     Dosage: 1250MG PER DAY
     Route: 048
     Dates: start: 20070505
  2. XELODA [Concomitant]
  3. POTASSIUM ACETATE [Concomitant]
  4. PARLODEL [Concomitant]
  5. PROMETHAZINE [Concomitant]
  6. ATIVAN [Concomitant]

REACTIONS (6)
  - DIARRHOEA [None]
  - NAUSEA [None]
  - PARAESTHESIA [None]
  - RASH [None]
  - VOMITING [None]
  - WEIGHT DECREASED [None]
